FAERS Safety Report 6725938-1 (Version None)
Quarter: 2010Q2

REPORT INFORMATION
  Report Type: 
  Country: None (occurrence: None)
  Receive Date: 20100512
  Receipt Date: 20100426
  Transmission Date: 20101027
  Serious: Yes (Hospitalization)
  Sender: FDA-Public Use
  Company Number: CTI_01185_2010

PATIENT
  Age: 59 Year
  Sex: Female

DRUGS (4)
  1. SPECTRACEF (MEIACT MS TABLET (CEFDITOREN PIVOXIL)) (NOT SPECIFIED) [Suspect]
     Indication: ERYSIPELAS
     Dosage: (300 MG ORAL)
     Route: 048
     Dates: start: 20100326, end: 20100329
  2. ROCEPHIN [Suspect]
     Indication: ERYSIPELAS
     Dosage: (DF)
  3. ZITHROMAX [Suspect]
     Indication: ERYSIPELAS
     Dosage: (DF)
  4. CRAVIT (CRAVIT (LEVOFLOXACIN HYDRATE)) (NOT SPECIFIED) [Suspect]
     Indication: ERYSIPELAS
     Dosage: (DF)

REACTIONS (3)
  - LYMPHOCYTE STIMULATION TEST POSITIVE [None]
  - MALAISE [None]
  - NAUSEA [None]
